FAERS Safety Report 12700252 (Version 2)
Quarter: 2016Q3

REPORT INFORMATION
  Report Type: Spontaneous
  Country: US (occurrence: US)
  Receive Date: 20160830
  Receipt Date: 20160926
  Transmission Date: 20161109
  Serious: Yes (Other)
  Sender: FDA-Public Use
  Company Number: US-ALLERGAN-1666933US

PATIENT
  Age: 65 Year
  Sex: Female

DRUGS (4)
  1. RANITIDINE. [Concomitant]
     Active Substance: RANITIDINE
     Dosage: 150 MG, QD
     Route: 048
  2. RESTASIS [Suspect]
     Active Substance: CYCLOSPORINE
     Indication: PRODUCT USED FOR UNKNOWN INDICATION
     Dosage: 2 GTT, BID
     Route: 047
  3. DOMPERIDONE [Concomitant]
     Active Substance: DOMPERIDONE
     Dosage: 10 MG, 1 TABLET 3 TIMES A DAY 30 MIN BEFORE MEAL
     Route: 048
  4. ALREX [Concomitant]
     Active Substance: LOTEPREDNOL ETABONATE
     Dosage: 2 GTT, BID
     Route: 047

REACTIONS (5)
  - Impaired gastric emptying [Not Recovered/Not Resolved]
  - Anxiety [Not Recovered/Not Resolved]
  - Endometrial cancer [Not Recovered/Not Resolved]
  - Gastrooesophageal reflux disease [Not Recovered/Not Resolved]
  - Hypothyroidism [Not Recovered/Not Resolved]
